FAERS Safety Report 24272507 (Version 1)
Quarter: 2024Q3

REPORT INFORMATION
  Report Type: Spontaneous
  Country: CN (occurrence: CN)
  Receive Date: 20240902
  Receipt Date: 20240902
  Transmission Date: 20241016
  Serious: Yes (Hospitalization)
  Sender: AMGEN
  Company Number: CN-AMGEN-CHNSP2024171842

PATIENT
  Age: 60 Year
  Sex: Male
  Weight: 59 kg

DRUGS (2)
  1. KYPROLIS [Suspect]
     Active Substance: CARFILZOMIB
     Indication: Neoplasm malignant
     Dosage: 45 MILLIGRAM, QD (ONCE A DAY)
     Route: 042
     Dates: start: 20240731, end: 20240801
  2. DEXTROSE [Concomitant]
     Active Substance: DEXTROSE\DEXTROSE MONOHYDRATE
     Indication: Product used for unknown indication
     Dosage: 100 MILLIGRAM, QD (ONCE A DAY)
     Route: 042
     Dates: start: 20240731, end: 20240801

REACTIONS (1)
  - Myelosuppression [Recovering/Resolving]

NARRATIVE: CASE EVENT DATE: 20240807
